FAERS Safety Report 9154643 (Version 1)
Quarter: 2013Q1

REPORT INFORMATION
  Report Type: Spontaneous
  Country: DE (occurrence: DE)
  Receive Date: 20130311
  Receipt Date: 20130311
  Transmission Date: 20140127
  Serious: Yes (Hospitalization)
  Sender: FDA-Public Use
  Company Number: DE-ASTRAZENECA-2013SE14187

PATIENT
  Sex: Female

DRUGS (3)
  1. ATACAND PLUS [Suspect]
     Indication: HYPERTENSION
     Route: 048
     Dates: end: 20130227
  2. NORVASC [Suspect]
     Indication: HYPERTENSION
     Route: 048
     Dates: end: 20130301
  3. VIGANTOL [Concomitant]

REACTIONS (5)
  - Dyspnoea [Unknown]
  - Chronic obstructive pulmonary disease [Unknown]
  - Pneumonia [Recovered/Resolved]
  - Back pain [Unknown]
  - Swollen tongue [Unknown]
